FAERS Safety Report 26202648 (Version 1)
Quarter: 2025Q4

REPORT INFORMATION
  Report Type: Spontaneous
  Country: US (occurrence: US)
  Receive Date: 20251226
  Receipt Date: 20251226
  Transmission Date: 20260117
  Serious: Yes (Death, Other)
  Sender: INCYTE
  Company Number: US-INCYTE CORPORATION-2025IN014281

PATIENT

DRUGS (150)
  1. JAKAFI [Suspect]
     Active Substance: RUXOLITINIB
     Indication: Myelofibrosis
     Dosage: UNK
     Route: 065
  2. RIFAMPIN [Suspect]
     Active Substance: RIFAMPIN
     Indication: Mycobacterium avium complex infection
     Dosage: UNK
     Route: 065
  3. OFIRMEV [Concomitant]
     Active Substance: ACETAMINOPHEN
     Indication: Product used for unknown indication
     Dosage: 650 MILLIGRAM, QD
  4. TYLENOL [Concomitant]
     Active Substance: ACETAMINOPHEN
     Indication: Product used for unknown indication
     Dosage: 650 MILLIGRAM, ONCE
     Route: 061
  5. TYLENOL [Concomitant]
     Active Substance: ACETAMINOPHEN
     Dosage: 650 MILLIGRAM, ONCE
     Route: 061
  6. TYLENOL [Concomitant]
     Active Substance: ACETAMINOPHEN
     Dosage: 650 MILLIGRAM, ONCE
     Route: 061
  7. TYLENOL [Concomitant]
     Active Substance: ACETAMINOPHEN
     Dosage: 650 MILLIGRAM, ONCE
     Route: 061
  8. TYLENOL [Concomitant]
     Active Substance: ACETAMINOPHEN
     Dosage: 650 MILLIGRAM, QD
     Route: 061
  9. BENADRYL [Concomitant]
     Active Substance: DIPHENHYDRAMINE HYDROCHLORIDE
     Indication: Product used for unknown indication
     Dosage: 25 MILLIGRAM, ONCE
     Route: 061
  10. BENADRYL [Concomitant]
     Active Substance: DIPHENHYDRAMINE HYDROCHLORIDE
     Dosage: 25 MILLIGRAM, ONCE
     Route: 061
  11. BENADRYL [Concomitant]
     Active Substance: DIPHENHYDRAMINE HYDROCHLORIDE
     Dosage: 25 MILLIGRAM, ONCE
     Route: 061
  12. BENADRYL [Concomitant]
     Active Substance: DIPHENHYDRAMINE HYDROCHLORIDE
     Dosage: 25 MILLIGRAM, Q4H (PRN) (INJECTION)
  13. BENADRYL [Concomitant]
     Active Substance: DIPHENHYDRAMINE HYDROCHLORIDE
     Dosage: 25 MILLIGRAM, ONCE
     Route: 061
  14. BENADRYL [Concomitant]
     Active Substance: DIPHENHYDRAMINE HYDROCHLORIDE
     Dosage: 25 MILLIGRAM, QD
     Route: 061
  15. BENADRYL [Concomitant]
     Active Substance: DIPHENHYDRAMINE HYDROCHLORIDE
     Dosage: 25 MILLIGRAM, ONCE
     Route: 061
  16. BENADRYL [Concomitant]
     Active Substance: DIPHENHYDRAMINE HYDROCHLORIDE
     Dosage: 25 MILLIGRAM, Q4H (PRN) (INJECTION)
  17. ALBUTEROL [Concomitant]
     Active Substance: ALBUTEROL
     Indication: Product used for unknown indication
     Dosage: 2.5 MILLIGRAM, TID
  18. ALBUTEROL [Concomitant]
     Active Substance: ALBUTEROL
     Dosage: 2.5 MILLIGRAM, ONCE
  19. AMIKIN [Concomitant]
     Active Substance: AMIKACIN SULFATE
     Indication: Product used for unknown indication
     Dosage: 500 MILLIGRAM, QD
  20. AMIKIN [Concomitant]
     Active Substance: AMIKACIN SULFATE
     Dosage: 500 MILLIGRAM, 3X/WEEK (EVERY MONDAY, WEDNESDAY, FRIDAY)
  21. AMIKACIN [Concomitant]
     Active Substance: AMIKACIN
     Indication: Product used for unknown indication
     Dosage: 590 MILLIGRAM, QD
  22. NORVASC [Concomitant]
     Active Substance: AMLODIPINE BESYLATE
     Indication: Product used for unknown indication
     Dosage: 5 MILLIGRAM, QD
     Route: 061
  23. NORVASC [Concomitant]
     Active Substance: AMLODIPINE BESYLATE
     Dosage: 10 MILLIGRAM, QD
     Route: 061
  24. NORVASC [Concomitant]
     Active Substance: AMLODIPINE BESYLATE
     Dosage: 10 MILLIGRAM, QD
     Route: 061
  25. WELLBUTRIN XL [Concomitant]
     Active Substance: BUPROPION HYDROCHLORIDE
     Indication: Product used for unknown indication
     Dosage: 150 MILLIGRAM, QD
     Route: 061
  26. BUSULFEX [Concomitant]
     Active Substance: BUSULFAN
     Indication: Product used for unknown indication
     Dosage: 3.2 MILLIGRAM/KILOGRAM, QD
  27. CALCIUM GLUCONATE AND SODIUM CHLORIDE [Concomitant]
     Indication: Product used for unknown indication
     Dosage: 1 GRAM, ONCE
  28. CALCIUM GLUCONATE AND SODIUM CHLORIDE [Concomitant]
     Dosage: 2 GRAM, ONCE
  29. CALCIUM GLUCONATE AND SODIUM CHLORIDE [Concomitant]
     Dosage: 2 GRAM, ONCE
  30. CALCIUM GLUCONATE AND SODIUM CHLORIDE [Concomitant]
     Dosage: 2 GRAM, ONCE
  31. ANCEF [Concomitant]
     Active Substance: CEFAZOLIN SODIUM
     Indication: Antibiotic prophylaxis
     Dosage: 1 GRAM, ONCE
  32. ANCEF [Concomitant]
     Active Substance: CEFAZOLIN SODIUM
     Dosage: 1 GRAM, ONCE
  33. DECADRON [Concomitant]
     Active Substance: DEXAMETHASONE
     Indication: Product used for unknown indication
     Dosage: 20 MILLIGRAM, ONCE AS NEEDED (INJECTION)
  34. DECADRON [Concomitant]
     Active Substance: DEXAMETHASONE
     Dosage: 12 MILLIGRAM, QD (TABLET)
     Route: 061
  35. VOLTAREN [Concomitant]
     Active Substance: DICLOFENAC SODIUM
     Indication: Product used for unknown indication
     Dosage: 2 GRAM, QID
     Route: 048
  36. PEPCID [Concomitant]
     Active Substance: FAMOTIDINE
     Indication: Product used for unknown indication
     Dosage: 20 MILLIGRAM, BID
     Route: 061
  37. PEPCID [Concomitant]
     Active Substance: FAMOTIDINE
     Dosage: 20 MILLIGRAM, Q4H (PRN)
     Route: 061
  38. PEPCID [Concomitant]
     Active Substance: FAMOTIDINE
     Dosage: 20 MILLIGRAM, QD
  39. PEPCID [Concomitant]
     Active Substance: FAMOTIDINE
     Dosage: 20 MILLIGRAM, QD
     Route: 061
  40. PEPCID [Concomitant]
     Active Substance: FAMOTIDINE
     Dosage: 20 MILLIGRAM, QD
  41. PEPCID [Concomitant]
     Active Substance: FAMOTIDINE
     Dosage: 20 MILLIGRAM, Q4H (PRN)
  42. RELEUKO [Concomitant]
     Active Substance: FILGRASTIM-AYOW
     Indication: Product used for unknown indication
     Dosage: 300 MICROGRAM, QD
  43. DIFLUCAN [Concomitant]
     Active Substance: FLUCONAZOLE
     Indication: Prophylaxis
     Dosage: 400 MILLIGRAM, QD
     Route: 061
  44. FLUDARA [Concomitant]
     Active Substance: FLUDARABINE PHOSPHATE
     Indication: Product used for unknown indication
     Dosage: 24 MILLIGRAM/SQ. METER, QD
  45. FLUDARA [Concomitant]
     Active Substance: FLUDARABINE PHOSPHATE
     Dosage: 24 MILLIGRAM/SQ. METER, QD
  46. BREO ELLIPTA [Concomitant]
     Active Substance: FLUTICASONE FUROATE\VILANTEROL TRIFENATATE
     Indication: Product used for unknown indication
     Dosage: 1 PUFF, QD
  47. INCRUSE ELLIPTA [Concomitant]
     Active Substance: UMECLIDINIUM BROMIDE
     Indication: Product used for unknown indication
     Dosage: 1 PUFF, QD
  48. EMEND (FOSAPREPITANT DIMEGLUMINE) [Concomitant]
     Active Substance: FOSAPREPITANT DIMEGLUMINE
     Indication: Product used for unknown indication
     Dosage: 150 MILLIGRAM, ONCE
  49. LASIX [Concomitant]
     Active Substance: FUROSEMIDE
     Indication: Product used for unknown indication
     Dosage: 20 MILLIGRAM, ONCE
     Route: 061
  50. LASIX [Concomitant]
     Active Substance: FUROSEMIDE
     Dosage: 20 MILLIGRAM, ONCE
     Route: 061
  51. LASIX [Concomitant]
     Active Substance: FUROSEMIDE
     Dosage: 20 MILLIGRAM, ONCE
  52. LASIX [Concomitant]
     Active Substance: FUROSEMIDE
     Dosage: 20 MILLIGRAM, ONCE
  53. LASIX [Concomitant]
     Active Substance: FUROSEMIDE
     Dosage: 40 MILLIGRAM, ONCE
  54. HALDOL (HALOPERIDOL LACTATE) [Concomitant]
     Active Substance: HALOPERIDOL LACTATE
     Indication: Product used for unknown indication
     Dosage: 5 MILLIGRAM, ONCE
  55. HALDOL (HALOPERIDOL LACTATE) [Concomitant]
     Active Substance: HALOPERIDOL LACTATE
     Dosage: 2.5 MILLIGRAM, ONCE
  56. HALDOL (HALOPERIDOL LACTATE) [Concomitant]
     Active Substance: HALOPERIDOL LACTATE
     Dosage: 2.5 MILLIGRAM, ONCE
  57. HALDOL (HALOPERIDOL LACTATE) [Concomitant]
     Active Substance: HALOPERIDOL LACTATE
     Dosage: 2.5 MILLIGRAM, ONCE
  58. HALDOL (HALOPERIDOL LACTATE) [Concomitant]
     Active Substance: HALOPERIDOL LACTATE
     Dosage: 5 MILLIGRAM, ONCE
  59. HALDOL (HALOPERIDOL LACTATE) [Concomitant]
     Active Substance: HALOPERIDOL LACTATE
     Dosage: 5 MILLIGRAM, ONCE
  60. HALDOL (HALOPERIDOL LACTATE) [Concomitant]
     Active Substance: HALOPERIDOL LACTATE
     Dosage: 5 MILLIGRAM, ONCE
  61. HALDOL (HALOPERIDOL LACTATE) [Concomitant]
     Active Substance: HALOPERIDOL LACTATE
     Dosage: 2 MILLIGRAM, ONCE
  62. HALDOL (HALOPERIDOL LACTATE) [Concomitant]
     Active Substance: HALOPERIDOL LACTATE
     Dosage: 5 MILLIGRAM, ONCE
  63. HALDOL (HALOPERIDOL LACTATE) [Concomitant]
     Active Substance: HALOPERIDOL LACTATE
     Dosage: 5 MILLIGRAM, ONCE
  64. HEPARIN SODIUM, PORCINE [Concomitant]
     Active Substance: HEPARIN SODIUM
     Indication: Product used for unknown indication
     Dosage: 2 MILLILITER, 3X/WEEK (EVERY MONDAY, WEDNESDAY, FRIDAY)
  65. HEPARIN SODIUM, PORCINE [Concomitant]
     Active Substance: HEPARIN SODIUM
     Dosage: UNK
  66. HEPARIN SODIUM, PORCINE [Concomitant]
     Active Substance: HEPARIN SODIUM
     Dosage: 1.5 MILLILITER, ONCE
  67. HEPARIN SODIUM, PORCINE [Concomitant]
     Active Substance: HEPARIN SODIUM
     Dosage: 1.7 MILLILITER, ONCE
  68. HEPARIN SODIUM, PORCINE [Concomitant]
     Active Substance: HEPARIN SODIUM
     Dosage: 300 INTERNATIONAL UNIT, ONCE
  69. HEPARIN SODIUM, PORCINE [Concomitant]
     Active Substance: HEPARIN SODIUM
     Dosage: 1 MILLILITER, EACH TIME IN DIALYSIS PRN
  70. HEPARIN SODIUM, PORCINE [Concomitant]
     Active Substance: HEPARIN SODIUM
     Dosage: 200 INTERNATIONAL UNIT, 3X/WEEK (EVERY MONDAY, WEDNESDAY, FRIDAY)
  71. HEPARIN SODIUM, PORCINE [Concomitant]
     Active Substance: HEPARIN SODIUM
     Dosage: 1.7 MILLILITER, ONCE AS NEEDED
  72. HEPARIN SODIUM, PORCINE [Concomitant]
     Active Substance: HEPARIN SODIUM
     Dosage: 1.9 MILLILITER, ONCE AS NEEDED
  73. LACTATED RINGERS SOLUTION [Concomitant]
     Active Substance: CALCIUM CHLORIDE\POTASSIUM CHLORIDE\SODIUM CHLORIDE\SODIUM LACTATE
     Indication: Product used for unknown indication
     Dosage: 1000 MILLILITER, ONCE
  74. LACTATED RINGERS SOLUTION [Concomitant]
     Active Substance: CALCIUM CHLORIDE\POTASSIUM CHLORIDE\SODIUM CHLORIDE\SODIUM LACTATE
     Dosage: 1000 MILLILITER, ONCE
  75. LACTATED RINGERS SOLUTION [Concomitant]
     Active Substance: CALCIUM CHLORIDE\POTASSIUM CHLORIDE\SODIUM CHLORIDE\SODIUM LACTATE
     Dosage: 1000 MILLILITER, ONCE
  76. LACTATED RINGERS SOLUTION [Concomitant]
     Active Substance: CALCIUM CHLORIDE\POTASSIUM CHLORIDE\SODIUM CHLORIDE\SODIUM LACTATE
     Dosage: 1000 MILLILITER, ONCE
  77. KEPPRA [Concomitant]
     Active Substance: LEVETIRACETAM
     Indication: Product used for unknown indication
     Dosage: 750 MILLIGRAM, BID
     Route: 061
  78. LEVAQUIN [Concomitant]
     Active Substance: LEVOFLOXACIN
     Indication: Prophylaxis
     Dosage: 500 MILLIGRAM, QD
     Route: 061
  79. ATIVAN [Concomitant]
     Active Substance: LORAZEPAM
     Indication: Product used for unknown indication
     Dosage: 1 MILLIGRAM, ONCE
     Route: 061
  80. MAGNESIUM SULFATE [Concomitant]
     Active Substance: MAGNESIUM SULFATE
     Indication: Product used for unknown indication
     Dosage: 2 GRAM, ONCE
  81. MAGNESIUM SULFATE [Concomitant]
     Active Substance: MAGNESIUM SULFATE
     Dosage: 2 GRAM, ONCE
  82. MAGNESIUM SULFATE [Concomitant]
     Active Substance: MAGNESIUM SULFATE
     Dosage: 2 GRAM, ONCE
  83. MAGNESIUM SULFATE [Concomitant]
     Active Substance: MAGNESIUM SULFATE
     Dosage: 2 GRAM, ONCE
  84. MAGNESIUM SULFATE IN DEXTROSE [Concomitant]
     Active Substance: MAGNESIUM SULFATE
     Indication: Product used for unknown indication
     Dosage: 1 GRAM, ONCE
  85. METHOTREXATE [Concomitant]
     Active Substance: METHOTREXATE
     Indication: Prophylaxis against graft versus host disease
     Dosage: 5 MILLIGRAM/SQ. METER, ONCE
  86. METHOTREXATE [Concomitant]
     Active Substance: METHOTREXATE
     Dosage: 5 MILLIGRAM/SQ. METER, ONCE
  87. METHOTREXATE [Concomitant]
     Active Substance: METHOTREXATE
     Dosage: 5 MILLIGRAM/SQ. METER, ONCE
  88. METHOTREXATE [Concomitant]
     Active Substance: METHOTREXATE
     Dosage: 5 MILLIGRAM/SQ. METER, ONCE
  89. VERSED [Concomitant]
     Active Substance: MIDAZOLAM HYDROCHLORIDE
     Indication: Product used for unknown indication
     Dosage: 2 MILLIGRAM, ONCE
  90. VERSED [Concomitant]
     Active Substance: MIDAZOLAM HYDROCHLORIDE
     Dosage: UNK
  91. VERSED [Concomitant]
     Active Substance: MIDAZOLAM HYDROCHLORIDE
     Dosage: UNK
     Route: 065
  92. VERSED [Concomitant]
     Active Substance: MIDAZOLAM HYDROCHLORIDE
     Dosage: 1 MILLIGRAM, ONCE
  93. NARCAN [Concomitant]
     Active Substance: NALOXONE HYDROCHLORIDE
     Indication: Product used for unknown indication
     Dosage: 0.4 MILLIGRAM, ONCE
  94. NICODERM CQ [Concomitant]
     Active Substance: NICOTINE
     Indication: Product used for unknown indication
     Dosage: 1 DOSAGE FORM, QD
  95. PROCARDIA [Concomitant]
     Active Substance: NIFEDIPINE
     Indication: Product used for unknown indication
     Dosage: 60 MILLIGRAM, QD
     Route: 061
  96. NOREPINEPHRINE BITARTRATE [Concomitant]
     Active Substance: NOREPINEPHRINE BITARTRATE
     Indication: Product used for unknown indication
     Dosage: UNK
     Route: 065
  97. MYCOSTATIN [Concomitant]
     Active Substance: NYSTATIN
     Indication: Product used for unknown indication
     Dosage: UNK, BID
     Route: 048
  98. ZYPREXA [Concomitant]
     Active Substance: OLANZAPINE
     Indication: Product used for unknown indication
     Dosage: 5 MILLIGRAM, QD (NIGHTLY)
     Route: 061
  99. ZYPREXA ZYDIS [Concomitant]
     Active Substance: OLANZAPINE
     Indication: Product used for unknown indication
     Dosage: 5 MILLIGRAM, QD (NIGHTLY)
     Route: 061
  100. ZOFRAN [Concomitant]
     Active Substance: ONDANSETRON HYDROCHLORIDE
     Indication: Product used for unknown indication
     Dosage: 24 MILLIGRAM, QD
     Route: 061
  101. ROXICODONE [Concomitant]
     Active Substance: OXYCODONE HYDROCHLORIDE
     Indication: Product used for unknown indication
     Dosage: 5 MILLIGRAM, ONCE
     Route: 061
  102. ROXICODONE [Concomitant]
     Active Substance: OXYCODONE HYDROCHLORIDE
     Dosage: 5 MILLIGRAM, ONCE
     Route: 061
  103. PROTONIX [Concomitant]
     Active Substance: PANTOPRAZOLE SODIUM
     Indication: Product used for unknown indication
     Dosage: 40 MILLIGRAM, QD (BEFORE BREAKFAST, EC TABLET)
     Route: 061
  104. PROTONIX [Concomitant]
     Active Substance: PANTOPRAZOLE SODIUM
     Dosage: 40 MILLIGRAM, QD (INJECTION)
  105. PROTONIX [Concomitant]
     Active Substance: PANTOPRAZOLE SODIUM
     Dosage: 40 MILLIGRAM, BID (INJECTION)
  106. NOXAFIL [Concomitant]
     Active Substance: POSACONAZOLE
     Indication: Product used for unknown indication
     Dosage: 300 MILLIGRAM, BID
     Route: 061
  107. NOXAFIL [Concomitant]
     Active Substance: POSACONAZOLE
     Dosage: 300 MILLIGRAM, QD
     Route: 061
  108. SODIUM BICARBONATE [Concomitant]
     Active Substance: SODIUM BICARBONATE
     Indication: Product used for unknown indication
     Dosage: 50 MILLIEQUIVALENT, ONCE (INJECTION)
  109. SODIUM BICARBONATE [Concomitant]
     Active Substance: SODIUM BICARBONATE
     Dosage: 1300 MILLIGRAM, BID (TABLET)
     Route: 061
  110. SODIUM BICARBONATE [Concomitant]
     Active Substance: SODIUM BICARBONATE
     Dosage: 100 ML/HR, CONTINUOUS (INFUSION)
  111. SODIUM BICARBONATE [Concomitant]
     Active Substance: SODIUM BICARBONATE
     Dosage: 50 MILLIEQUIVALENT, ONCE (INJECTION)
  112. LOKELMA [SODIUM ZIRCONIUM CYCLOSILICATE] [Concomitant]
     Indication: Product used for unknown indication
     Dosage: 10 GRAM, ONCE
     Route: 061
  113. ALDACTONE [Concomitant]
     Active Substance: SPIRONOLACTONE
     Indication: Product used for unknown indication
     Dosage: 25 MILLIGRAM, QD
     Route: 061
  114. PROGRAF [Concomitant]
     Active Substance: TACROLIMUS
     Indication: Product used for unknown indication
     Dosage: 0.045 MILLIGRAM/KILOGRAM, BID
     Route: 061
  115. PROGRAF [Concomitant]
     Active Substance: TACROLIMUS
     Dosage: 1.5 MILLIGRAM, BID
     Route: 061
  116. PROGRAF [Concomitant]
     Active Substance: TACROLIMUS
     Dosage: 1 MILLIGRAM, BID
     Route: 061
  117. PROGRAF [Concomitant]
     Active Substance: TACROLIMUS
     Dosage: 0.03 MILLIGRAM/KILOGRAM, BID
     Route: 061
  118. PROGRAF [Concomitant]
     Active Substance: TACROLIMUS
     Dosage: 2 MILLIGRAM, ONCE
     Route: 061
  119. PROGRAF [Concomitant]
     Active Substance: TACROLIMUS
     Dosage: 1.5 MILLIGRAM, BID
     Route: 061
  120. PROGRAF [Concomitant]
     Active Substance: TACROLIMUS
     Dosage: 2.5 MILLIGRAM, QD (NIGHTLY)
     Route: 061
  121. PROGRAF [Concomitant]
     Active Substance: TACROLIMUS
     Dosage: 2 MILLIGRAM, QD
     Route: 061
  122. PROGRAF [Concomitant]
     Active Substance: TACROLIMUS
     Dosage: 2.5 MILLIGRAM, QD (NIGHTLY) (SUSPENSION)
     Route: 061
  123. PROGRAF [Concomitant]
     Active Substance: TACROLIMUS
     Dosage: 2 MILLIGRAM, QD (SUSPENSION)
     Route: 061
  124. PROGRAF [Concomitant]
     Active Substance: TACROLIMUS
     Dosage: 2 MILLIGRAM, QD (NIGHTLY) (SUSPENSION)
     Route: 061
  125. PROGRAF [Concomitant]
     Active Substance: TACROLIMUS
     Dosage: 1 MILLIGRAM, QD (NIGHTLY) (SUSPENSION)
     Route: 061
  126. PROGRAF [Concomitant]
     Active Substance: TACROLIMUS
     Dosage: 1.5 MILLIGRAM, QD (SUSPENSION)
     Route: 061
  127. PROGRAF [Concomitant]
     Active Substance: TACROLIMUS
     Dosage: 0.5 MILLIGRAM, BID
  128. PROGRAF [Concomitant]
     Active Substance: TACROLIMUS
     Dosage: 1 MILLIGRAM, QD (SUSPENSION)
     Route: 061
  129. FLOMAX [Concomitant]
     Active Substance: TAMSULOSIN HYDROCHLORIDE
     Indication: Product used for unknown indication
     Dosage: 0.4 MILLIGRAM, QD (NIGHTLY)
     Route: 061
  130. ACTIGALL [Concomitant]
     Active Substance: URSODIOL
     Indication: Product used for unknown indication
     Dosage: 300 MILLIGRAM, TID (CAPSULE)
     Route: 061
  131. ACTIGALL [Concomitant]
     Active Substance: URSODIOL
     Dosage: 300 MILLIGRAM, TID (SUSPENSION)
     Route: 061
  132. VALTREX [Concomitant]
     Active Substance: VALACYCLOVIR HYDROCHLORIDE
     Indication: Antiviral prophylaxis
     Dosage: 500 MILLIGRAM, BID (TABLET)
     Route: 061
  133. VALTREX [Concomitant]
     Active Substance: VALACYCLOVIR HYDROCHLORIDE
     Dosage: 500 MILLIGRAM, BID
     Route: 061
  134. NOREPINEPHRINE [Concomitant]
     Active Substance: NOREPINEPHRINE
     Indication: Product used for unknown indication
     Dosage: 0-30 MCG/MIN, CONTINUOUS
  135. SOLU-MEDROL [Concomitant]
     Active Substance: METHYLPREDNISOLONE SODIUM SUCCINATE
     Indication: Product used for unknown indication
     Dosage: 125 MILLIGRAM, Q4H (PRN)
  136. SOLU-MEDROL [Concomitant]
     Active Substance: METHYLPREDNISOLONE SODIUM SUCCINATE
     Dosage: 125 MILLIGRAM, ONCE AS NEEDED
  137. SOLU-MEDROL [Concomitant]
     Active Substance: METHYLPREDNISOLONE SODIUM SUCCINATE
     Dosage: 125 MILLIGRAM, Q4H (PRN)
  138. EPIPEN [Concomitant]
     Active Substance: EPINEPHRINE
     Indication: Product used for unknown indication
     Dosage: 0.3 MILLIGRAM, QD (PRN)
  139. EPIPEN [Concomitant]
     Active Substance: EPINEPHRINE
     Dosage: 0.3 MILLIGRAM, ONCE AS NEEDED
  140. EPIPEN [Concomitant]
     Active Substance: EPINEPHRINE
     Dosage: 0.3 MILLIGRAM, QD (PRN)
  141. VASOPRESSIN [ARGIPRESSIN] [Concomitant]
     Indication: Product used for unknown indication
     Dosage: 0.03 UNITS/MIN, CONTINUOUS
  142. SUBLIMAZE [Concomitant]
     Active Substance: FENTANYL CITRATE
     Indication: Product used for unknown indication
     Dosage: UNK
  143. ROBINUL [Concomitant]
     Active Substance: GLYCOPYRROLATE
     Indication: Product used for unknown indication
     Dosage: 0.1 MILLIGRAM, Q6H (PRN)
  144. HEPARIN LOCK FLUSH [Concomitant]
     Active Substance: HEPARIN SODIUM
     Indication: Catheter management
     Dosage: 50 INTERNATIONAL UNIT, EVERY 30 MINS PRN
  145. HEPARIN LOCK FLUSH [Concomitant]
     Active Substance: HEPARIN SODIUM
     Dosage: 50 INTERNATIONAL UNIT, EVERY 30 MINS PRN
  146. HEPARIN LOCK FLUSH [Concomitant]
     Active Substance: HEPARIN SODIUM
     Dosage: 50 INTERNATIONAL UNIT, EVERY 30 MINS PRN
  147. HEPARIN LOCK FLUSH [Concomitant]
     Active Substance: HEPARIN SODIUM
     Dosage: 50 INTERNATIONAL UNIT, EVERY 30 MINS PRN
  148. HEPARIN LOCK FLUSH [Concomitant]
     Active Substance: HEPARIN SODIUM
     Dosage: 50 INTERNATIONAL UNIT, EVERY 30 MINS PRN
  149. HEPARIN LOCK FLUSH [Concomitant]
     Active Substance: HEPARIN SODIUM
     Dosage: 50 INTERNATIONAL UNIT, EVERY 30 MINS PRN
  150. APRESOLINE HYDROCHLORIDE [Concomitant]
     Active Substance: HYDRALAZINE HYDROCHLORIDE
     Indication: Product used for unknown indication

REACTIONS (54)
  - Toxic encephalopathy [Fatal]
  - Gastrointestinal haemorrhage [Fatal]
  - Mycobacterium avium complex infection [Unknown]
  - Complications of bone marrow transplant [Unknown]
  - Acute kidney injury [Unknown]
  - Chronic kidney disease [Unknown]
  - Multiple organ dysfunction syndrome [Unknown]
  - Pancytopenia [Unknown]
  - Shock [Unknown]
  - Infarction [Unknown]
  - Sepsis [Unknown]
  - Immunodeficiency [Unknown]
  - Staphylococcal bacteraemia [Recovered/Resolved]
  - Staphylococcal infection [Unknown]
  - Colitis [Unknown]
  - Stevens-Johnson syndrome [Unknown]
  - Acute respiratory failure [Recovering/Resolving]
  - Oesophageal candidiasis [Recovering/Resolving]
  - Hepatic failure [Unknown]
  - Electrocardiogram QT prolonged [Unknown]
  - Myelofibrosis [Unknown]
  - Thrombocytopenia [Unknown]
  - Body temperature decreased [Unknown]
  - Electrolyte imbalance [Unknown]
  - pH body fluid abnormal [Unknown]
  - Haemodynamic instability [Unknown]
  - General physical health deterioration [Unknown]
  - Chronic obstructive pulmonary disease [Unknown]
  - Emphysema [Unknown]
  - Abdominal discomfort [Unknown]
  - Hypoglycaemia [Unknown]
  - Oral candidiasis [Recovering/Resolving]
  - Hypoalbuminaemia [Unknown]
  - Hiccups [Unknown]
  - Dyspepsia [Unknown]
  - Blood pressure abnormal [Unknown]
  - Pain [Unknown]
  - Pruritus [Unknown]
  - Anxiety [Unknown]
  - Blood magnesium abnormal [Unknown]
  - Rash [Unknown]
  - Pyrexia [Unknown]
  - Abdominal pain upper [Unknown]
  - Bradycardia [Unknown]
  - Dry skin [Unknown]
  - Agitation [Unknown]
  - Vomiting [Unknown]
  - Disease progression [Unknown]
  - Anaemia [Unknown]
  - Neutrophil count decreased [Unknown]
  - Nausea [Unknown]
  - Headache [Unknown]
  - Muscle spasms [Unknown]
  - Diarrhoea [Unknown]
